FAERS Safety Report 6620798-1 (Version None)
Quarter: 2010Q1

REPORT INFORMATION
  Report Type: 
  Country: None (occurrence: None)
  Receive Date: 20100309
  Receipt Date: 20100226
  Transmission Date: 20100710
  Serious: Yes (Life-Threatening, Hospitalization)
  Sender: FDA-Public Use
  Company Number: FR-WATSON-2010-02551

PATIENT
  Age: 30 Year
  Sex: Female

DRUGS (3)
  1. HYDROXYZINE HCL [Suspect]
     Indication: DRUG USE FOR UNKNOWN INDICATION
     Dosage: 250 MG, UNK
  2. ALPRAZOLAM [Suspect]
     Indication: DRUG USE FOR UNKNOWN INDICATION
     Dosage: 500 MG, UNK
  3. VENLAFAXINE [Suspect]
     Indication: DRUG USE FOR UNKNOWN INDICATION
     Dosage: 5 1/2 G, UNK

REACTIONS (6)
  - CONVULSION [None]
  - LEFT VENTRICULAR FAILURE [None]
  - OVERDOSE [None]
  - PULMONARY OEDEMA [None]
  - RHABDOMYOLYSIS [None]
  - SEROTONIN SYNDROME [None]
